FAERS Safety Report 7453525-9 (Version None)
Quarter: 2011Q2

REPORT INFORMATION
  Report Type: 
  Country: None (occurrence: None)
  Receive Date: 20110502
  Receipt Date: 20110217
  Transmission Date: 20111010
  Serious: No
  Sender: FDA-Public Use
  Company Number: US-ASTRAZENECA-2011SE09611

PATIENT
  Age: 78 Year
  Sex: Female

DRUGS (3)
  1. PRILOSEC [Suspect]
     Route: 048
  2. NEXIUM [Suspect]
     Route: 048
  3. COUMADIN [Concomitant]

REACTIONS (5)
  - HYPERTENSION [None]
  - ABDOMINAL DISCOMFORT [None]
  - DIARRHOEA [None]
  - NASOPHARYNGITIS [None]
  - HYPERSENSITIVITY [None]
